FAERS Safety Report 9204922 (Version 1)
Quarter: 2013Q2

REPORT INFORMATION
  Report Type: Spontaneous
  Country: US (occurrence: None)
  Receive Date: 20130401
  Receipt Date: 20130401
  Transmission Date: 20140414
  Serious: Yes (Life-Threatening, Hospitalization)
  Sender: FDA-Public Use
  Company Number: None

PATIENT
  Age: 64 Year
  Sex: Male
  Weight: 178.2 kg

DRUGS (1)
  1. DILTIAZEM [Suspect]
     Indication: ATRIAL FIBRILLATION
     Dosage: 240 MG ONCE PO
     Route: 048
     Dates: start: 20120927, end: 20120907

REACTIONS (6)
  - Dizziness [None]
  - Nausea [None]
  - Vomiting [None]
  - Palpitations [None]
  - Hypotension [None]
  - Bradycardia [None]
